FAERS Safety Report 13394185 (Version 1)
Quarter: 2017Q2

REPORT INFORMATION
  Report Type: Spontaneous
  Country: US (occurrence: US)
  Receive Date: 20170401
  Receipt Date: 20170401
  Transmission Date: 20170830
  Serious: No
  Sender: FDA-Public Use
  Company Number: US-ELI_LILLY_AND_COMPANY-US201608014076

PATIENT
  Sex: Female

DRUGS (4)
  1. CYMBALTA [Suspect]
     Active Substance: DULOXETINE HYDROCHLORIDE
     Dosage: 30 MG, UNKNOWN
     Route: 065
  2. CYMBALTA [Suspect]
     Active Substance: DULOXETINE HYDROCHLORIDE
     Indication: PRODUCT USED FOR UNKNOWN INDICATION
     Dosage: 120 MG, UNKNOWN
     Route: 065
  3. CYMBALTA [Suspect]
     Active Substance: DULOXETINE HYDROCHLORIDE
     Dosage: 60 MG, UNKNOWN
     Route: 065
     Dates: start: 201209
  4. CYMBALTA [Suspect]
     Active Substance: DULOXETINE HYDROCHLORIDE
     Dosage: UNK UNK, UNKNOWN
     Route: 065
     Dates: end: 201102

REACTIONS (13)
  - Vomiting [Unknown]
  - Nausea [Unknown]
  - Fatigue [Unknown]
  - Dizziness [Unknown]
  - Asthenia [Unknown]
  - Headache [Unknown]
  - Drug withdrawal syndrome [Unknown]
  - Sensory disturbance [Unknown]
  - Vertigo [Unknown]
  - Lethargy [Unknown]
  - Insomnia [Unknown]
  - Paraesthesia [Unknown]
  - Anxiety [Unknown]
